FAERS Safety Report 5274057-2 (Version None)
Quarter: 2007Q1

REPORT INFORMATION
  Report Type: 
  Country: None (occurrence: None)
  Receive Date: 20070323
  Receipt Date: 20070312
  Transmission Date: 20070707
  Serious: Yes (Other)
  Sender: FDA-Public Use
  Company Number: PHEH2007US02970

PATIENT
  Sex: Female

DRUGS (2)
  1. LOTREL [Suspect]
     Indication: HYPERTENSION
     Dosage: 10/20 MG, UNK
     Route: 048
     Dates: start: 20070201, end: 20070201
  2. LOTREL [Suspect]
     Dosage: 1/2 OF 10/20 MG CAPSULE, BID
     Route: 048
     Dates: start: 20070201

REACTIONS (3)
  - BLOOD PRESSURE DECREASED [None]
  - DISORIENTATION [None]
  - SPEECH DISORDER [None]
